FAERS Safety Report 12454190 (Version 1)
Quarter: 2016Q2

REPORT INFORMATION
  Report Type: Spontaneous
  Country: US (occurrence: US)
  Receive Date: 20160610
  Receipt Date: 20160610
  Transmission Date: 20160815
  Serious: No
  Sender: FDA-Public Use
  Company Number: US-TEVA-657790USA

PATIENT
  Sex: Male
  Weight: 88.53 kg

DRUGS (1)
  1. AMLODIPINE W/VALSARTAN [Suspect]
     Active Substance: AMLODIPINE\VALSARTAN
     Indication: BLOOD PRESSURE ABNORMAL
     Dosage: 10 MG/320 MG

REACTIONS (3)
  - Nausea [Unknown]
  - Product physical issue [Unknown]
  - Gastric disorder [Unknown]
